FAERS Safety Report 6772849-1 (Version None)
Quarter: 2010Q2

REPORT INFORMATION
  Report Type: 
  Country: None (occurrence: None)
  Receive Date: 20100616
  Receipt Date: 20100609
  Transmission Date: 20101027
  Serious: Yes (Hospitalization)
  Sender: FDA-Public Use
  Company Number: US-JNJFOC-20100603269

PATIENT
  Age: 80 Year
  Sex: Female
  Weight: 41.73 kg

DRUGS (5)
  1. TYLENOL (CAPLET) [Suspect]
     Route: 048
  2. TYLENOL (CAPLET) [Suspect]
     Indication: ARTHRALGIA
     Route: 048
  3. SYNTHROID [Concomitant]
  4. LIPITOR [Concomitant]
  5. UNKNOWN MEDICATION [Concomitant]
     Indication: CARDIAC DISORDER

REACTIONS (5)
  - ABDOMINAL PAIN UPPER [None]
  - BACTERIAL INFECTION [None]
  - DIARRHOEA [None]
  - PANCREATITIS [None]
  - PRODUCT QUALITY ISSUE [None]
